FAERS Safety Report 9291347 (Version 1)
Quarter: 2013Q2

REPORT INFORMATION
  Report Type: Spontaneous
  Country: JP (occurrence: JP)
  Receive Date: 20130515
  Receipt Date: 20130515
  Transmission Date: 20140414
  Serious: Yes (Hospitalization)
  Sender: FDA-Public Use
  Company Number: JP-GILEAD-2013-0075019

PATIENT
  Age: 48 Year
  Sex: Male

DRUGS (3)
  1. TRUVADA [Suspect]
     Indication: HISTIOCYTOSIS HAEMATOPHAGIC
     Dosage: UNK
  2. RALTEGRAVIR [Suspect]
     Indication: HISTIOCYTOSIS HAEMATOPHAGIC
  3. CEFOTAXIME SODIUM [Concomitant]
     Indication: PRODUCT USED FOR UNKNOWN INDICATION

REACTIONS (2)
  - Hepatic failure [Recovered/Resolved]
  - Renal failure acute [Recovered/Resolved]
